FAERS Safety Report 24073010 (Version 1)
Quarter: 2024Q3

REPORT INFORMATION
  Report Type: Spontaneous
  Country: US (occurrence: US)
  Receive Date: 20240710
  Receipt Date: 20240710
  Transmission Date: 20241016
  Serious: No
  Sender: RECORDATI
  Company Number: US-RECORDATI RARE DISEASE INC.-2024002670

PATIENT

DRUGS (2)
  1. PANHEMATIN [Suspect]
     Active Substance: HEMIN
     Indication: Porphyria acute
     Dosage: UNK
     Dates: start: 2022
  2. PANHEMATIN [Suspect]
     Active Substance: HEMIN
     Dosage: 350 MG, QD
     Dates: start: 20240405

REACTIONS (3)
  - Skin discolouration [Unknown]
  - Skin swelling [Unknown]
  - Injection site reaction [Unknown]

NARRATIVE: CASE EVENT DATE: 20240401
